FAERS Safety Report 9170849 (Version 1)
Quarter: 2013Q1

REPORT INFORMATION
  Report Type: Spontaneous
  Country: US (occurrence: None)
  Receive Date: 20130315
  Receipt Date: 20130315
  Transmission Date: 20140127
  Serious: Yes (Other)
  Sender: FDA-Public Use
  Company Number: None

PATIENT
  Age: 62 Year
  Sex: Male
  Weight: 81.3 kg

DRUGS (6)
  1. PAZOPANIB [Suspect]
     Indication: CHONDROSARCOMA
     Route: 048
     Dates: start: 20130219
  2. PCI-24781 [Suspect]
     Route: 048
     Dates: start: 20130212, end: 20130309
  3. ALLOPURINOL [Concomitant]
  4. ALPRAZOLAM [Concomitant]
  5. CALCIUM CARBONATE-VITAMIN D [Concomitant]
  6. DENCSUMAB [Concomitant]

REACTIONS (1)
  - Overdose [None]
